APPROVED DRUG PRODUCT: ANECTINE
Active Ingredient: SUCCINYLCHOLINE CHLORIDE
Strength: 500MG/VIAL
Dosage Form/Route: INJECTABLE;INJECTION
Application: N008453 | Product #001
Applicant: SANDOZ INC
Approved: Approved Prior to Jan 1, 1982 | RLD: No | RS: No | Type: DISCN